FAERS Safety Report 7995001-0 (Version None)
Quarter: 2011Q4

REPORT INFORMATION
  Report Type: 
  Country: None (occurrence: None)
  Receive Date: 20111220
  Receipt Date: 20111025
  Transmission Date: 20120403
  Serious: Yes (Other)
  Sender: FDA-Public Use
  Company Number: US-PURDUE-USA-2011-0079787

PATIENT
  Sex: Male

DRUGS (3)
  1. OXYCONTIN [Suspect]
     Indication: SKULL FRACTURE
  2. OXYCONTIN [Suspect]
     Indication: SPINAL COLUMN STENOSIS
     Dosage: UNK
     Dates: start: 19951222, end: 20110301
  3. OXYCONTIN [Suspect]
     Indication: CRANIOCEREBRAL INJURY

REACTIONS (4)
  - CONVULSION [None]
  - MENTAL DISORDER [None]
  - DRUG DEPENDENCE [None]
  - SUICIDE ATTEMPT [None]
